FAERS Safety Report 4358770-7 (Version None)
Quarter: 2004Q2

REPORT INFORMATION
  Report Type: 
  Country: None (occurrence: None)
  Receive Date: 20040511
  Receipt Date: 20040429
  Transmission Date: 20050107
  Serious: Yes (Hospitalization)
  Sender: FDA-Public Use
  Company Number: NSADSS2002015059

PATIENT
  Age: 50 Year
  Sex: Male
  Weight: 74.3899 kg

DRUGS (10)
  1. REMICADE [Suspect]
     Indication: RHEUMATOID ARTHRITIS
     Dosage: SEE IMAGE
     Route: 042
     Dates: start: 20011025, end: 20011025
  2. REMICADE [Suspect]
     Indication: RHEUMATOID ARTHRITIS
     Dosage: SEE IMAGE
     Route: 042
     Dates: start: 20020205, end: 20020205
  3. REMICADE [Suspect]
     Indication: RHEUMATOID ARTHRITIS
     Dosage: SEE IMAGE
     Route: 042
     Dates: start: 20020402, end: 20020402
  4. SOLU-CORTEF [Concomitant]
  5. APAP (PARACETAMOL) [Concomitant]
  6. PREDNISONE [Concomitant]
  7. METHOTREXATE SODIUM [Concomitant]
  8. BENADRYL [Concomitant]
  9. FOLIC ACID [Concomitant]
  10. CELEBREX [Concomitant]

REACTIONS (5)
  - ASTHENIA [None]
  - INSOMNIA [None]
  - MENINGITIS ASEPTIC [None]
  - MUSCLE SPASMS [None]
  - RASH PRURITIC [None]
